FAERS Safety Report 5338973-5 (Version None)
Quarter: 2007Q2

REPORT INFORMATION
  Report Type: 
  Country: None (occurrence: None)
  Receive Date: 20070404
  Receipt Date: 20060211
  Transmission Date: 20071010
  Serious: Yes (Other)
  Sender: FDA-Public Use
  Company Number: HQWYE836816FEB06

PATIENT
  Age: 80 Year
  Sex: Female

DRUGS (1)
  1. ALAVERT [Suspect]
     Indication: HYPERSENSITIVITY
     Dosage: 1 TABLET ONCE, ORAL
     Route: 048
     Dates: start: 20060210, end: 20060210

REACTIONS (3)
  - FEELING HOT [None]
  - INSOMNIA [None]
  - PRURITUS GENERALISED [None]
